FAERS Safety Report 12334478 (Version 1)
Quarter: 2016Q2

REPORT INFORMATION
  Report Type: Spontaneous
  Country: US (occurrence: US)
  Receive Date: 20160504
  Receipt Date: 20160504
  Transmission Date: 20160815
  Serious: No
  Sender: FDA-Public Use
  Company Number: US-ROCHE-ITM201505IM016155

PATIENT
  Sex: Male

DRUGS (4)
  1. ESBRIET [Suspect]
     Active Substance: PIRFENIDONE
     Route: 048
  2. ESBRIET [Suspect]
     Active Substance: PIRFENIDONE
     Route: 048
  3. ESBRIET [Suspect]
     Active Substance: PIRFENIDONE
     Indication: IDIOPATHIC PULMONARY FIBROSIS
     Dosage: 3 CAPSULES PO TOD
     Route: 048
     Dates: start: 20150428
  4. ESBRIET [Suspect]
     Active Substance: PIRFENIDONE
     Dosage: 1 TAB
     Route: 048
     Dates: start: 20150501, end: 20150527

REACTIONS (3)
  - Cognitive disorder [Unknown]
  - Confusional state [Unknown]
  - Dementia [Unknown]
